FAERS Safety Report 25073896 (Version 2)
Quarter: 2025Q2

REPORT INFORMATION
  Report Type: Spontaneous
  Country: US (occurrence: US)
  Receive Date: 20250313
  Receipt Date: 20250514
  Transmission Date: 20250717
  Serious: Yes (Hospitalization)
  Sender: AUROBINDO
  Company Number: US-AUROBINDO-AUR-APL-2025-012587

PATIENT
  Age: 77 Year
  Sex: Female

DRUGS (1)
  1. CLOZAPINE [Suspect]
     Active Substance: CLOZAPINE
     Indication: Product used for unknown indication
     Route: 065

REACTIONS (4)
  - Fall [Unknown]
  - Head injury [Unknown]
  - Dizziness [Unknown]
  - Drug interaction [Unknown]

NARRATIVE: CASE EVENT DATE: 20250211
